FAERS Safety Report 14995246 (Version 1)
Quarter: 2018Q2

REPORT INFORMATION
  Report Type: Spontaneous
  Country: US (occurrence: US)
  Receive Date: 20180521
  Receipt Date: 20180521
  Transmission Date: 20180711
  Serious: Yes (Death)
  Sender: FDA-Public Use
  Company Number: None

PATIENT
  Age: 43 Year
  Sex: Male

DRUGS (4)
  1. NEULASTA [Suspect]
     Active Substance: PEGFILGRASTIM
     Indication: LIVER DISORDER
     Dosage: ?          OTHER FREQUENCY:DAY 2 CHEMOTHREPAY;?
     Route: 058
     Dates: start: 20151013, end: 20180518
  2. COMBIVENT [Concomitant]
     Active Substance: ALBUTEROL SULFATE\IPRATROPIUM BROMIDE
     Dates: start: 20180422, end: 20180518
  3. NYSTATIN. [Concomitant]
     Active Substance: NYSTATIN
  4. NEULASTA [Suspect]
     Active Substance: PEGFILGRASTIM
     Indication: SOFT TISSUE SARCOMA
     Dosage: ?          OTHER FREQUENCY:DAY 2 CHEMOTHREPAY;?
     Route: 058
     Dates: start: 20151013, end: 20180518

REACTIONS (1)
  - Death [None]

NARRATIVE: CASE EVENT DATE: 20180518
